FAERS Safety Report 10420779 (Version 1)
Quarter: 2014Q3

REPORT INFORMATION
  Report Type: Spontaneous
  Country: US (occurrence: None)
  Receive Date: 20140709
  Receipt Date: 20140709
  Transmission Date: 20150326
  Serious: Yes (Other)
  Sender: FDA-Public Use
  Company Number: PHEH2013US011545

PATIENT
  Sex: Female
  Weight: 58 kg

DRUGS (1)
  1. GLEEVEC [Suspect]
     Active Substance: IMATINIB MESYLATE
     Indication: GASTROINTESTINAL STROMAL TUMOUR
     Dates: start: 20130204

REACTIONS (11)
  - Frequent bowel movements [None]
  - Anaemia [None]
  - Diarrhoea [None]
  - Arthralgia [None]
  - Dyspnoea [None]
  - Leukopenia [None]
  - Joint swelling [None]
  - Ear swelling [None]
  - Abdominal pain upper [None]
  - Blood iron decreased [None]
  - Eye swelling [None]

NARRATIVE: CASE EVENT DATE: 20130514
